FAERS Safety Report 7263369-9 (Version None)
Quarter: 2011Q1

REPORT INFORMATION
  Report Type: 
  Country: None (occurrence: None)
  Receive Date: 20110130
  Receipt Date: 20101129
  Transmission Date: 20110831
  Serious: Yes (Hospitalization)
  Sender: FDA-Public Use
  Company Number: US-ABBOTT-10P-163-0683767-00

PATIENT
  Age: 84 Year
  Sex: Female
  Weight: 49.94 kg

DRUGS (14)
  1. METHOTREXATE [Concomitant]
     Indication: RHEUMATOID ARTHRITIS
  2. PREDNISONE [Concomitant]
     Indication: PRODUCT USED FOR UNKNOWN INDICATION
  3. FOSAMAX [Concomitant]
     Indication: OSTEOPOROSIS
  4. MULTI-VITAMIN [Concomitant]
     Indication: VITAMIN SUPPLEMENTATION
  5. RESTORIL [Concomitant]
     Indication: INSOMNIA
  6. RELAFEN [Concomitant]
     Indication: INFLAMMATION
  7. LISINOPRIL [Concomitant]
     Indication: HYPERTENSION
  8. FOLATE [Concomitant]
     Indication: PRODUCT USED FOR UNKNOWN INDICATION
  9. HUMIRA [Suspect]
     Indication: RHEUMATOID ARTHRITIS
     Dates: start: 20050101
  10. SYMBICORT [Concomitant]
     Indication: CHRONIC OBSTRUCTIVE PULMONARY DISEASE
     Dosage: 160/1.5
  11. OMEPRAZOLE [Concomitant]
     Indication: DYSPEPSIA
  12. FISH OIL [Concomitant]
     Indication: SUPPLEMENTATION THERAPY
  13. TYLENOL-500 [Concomitant]
     Indication: PAIN
  14. CALCIUM SUPPLEMENT [Concomitant]
     Indication: OSTEOPOROSIS

REACTIONS (10)
  - INJECTION SITE HAEMORRHAGE [None]
  - FEELING ABNORMAL [None]
  - JOINT SWELLING [None]
  - INJECTION SITE HAEMATOMA [None]
  - ARTHRITIS [None]
  - INCORRECT DOSE ADMINISTERED [None]
  - PRODUCT PACKAGING ISSUE [None]
  - LIGAMENT RUPTURE [None]
  - KNEE ARTHROPLASTY [None]
  - RHEUMATOID ARTHRITIS [None]
